FAERS Safety Report 23762084 (Version 1)
Quarter: 2024Q2

REPORT INFORMATION
  Report Type: Spontaneous
  Country: NL (occurrence: NL)
  Receive Date: 20240419
  Receipt Date: 20240419
  Transmission Date: 20240716
  Serious: Yes (Death, Other)
  Sender: FDA-Public Use
  Company Number: NL-TASMAN PHARMA, INC.-2024TSM00176

PATIENT
  Age: 54 Year
  Sex: Male

DRUGS (2)
  1. CLOZAPINE [Suspect]
     Active Substance: CLOZAPINE
     Indication: Schizophrenia
     Dosage: 500 MG PER DAY
     Dates: end: 202209
  2. CLOZAPINE [Suspect]
     Active Substance: CLOZAPINE
     Dosage: RECHALLENGE; TITRATION UP TO 150 MG/DAY
     Dates: start: 202211

REACTIONS (3)
  - B-cell lymphoma [Fatal]
  - Leukopenia [Unknown]
  - Neutropenia [Unknown]

NARRATIVE: CASE EVENT DATE: 20210901
